FAERS Safety Report 7380581-9 (Version None)
Quarter: 2011Q1

REPORT INFORMATION
  Report Type: 
  Country: None (occurrence: None)
  Receive Date: 20110329
  Receipt Date: 20110323
  Transmission Date: 20110831
  Serious: Yes (Other)
  Sender: FDA-Public Use
  Company Number: JP-SANOFI-AVENTIS-2011SA018220

PATIENT
  Age: 37 Year
  Sex: Female
  Weight: 81 kg

DRUGS (11)
  1. LANTUS [Suspect]
     Route: 058
     Dates: start: 20091215, end: 20091221
  2. LANTUS [Suspect]
     Indication: TYPE 2 DIABETES MELLITUS
     Route: 058
     Dates: start: 20091201, end: 20091214
  3. EXENATIDE [Suspect]
     Indication: TYPE 2 DIABETES MELLITUS
     Route: 058
     Dates: start: 20100601, end: 20101124
  4. METFORMIN HYDROCHLORIDE [Concomitant]
     Route: 048
     Dates: start: 20110209
  5. METFORMIN HYDROCHLORIDE [Concomitant]
     Indication: TYPE 2 DIABETES MELLITUS
     Route: 048
     Dates: start: 20090703, end: 20110123
  6. LANTUS [Suspect]
     Route: 058
     Dates: start: 20091222, end: 20100530
  7. ALLELOCK [Concomitant]
     Route: 048
     Dates: start: 20100223, end: 20100531
  8. ALLELOCK [Concomitant]
     Route: 048
     Dates: start: 20110209
  9. METFORMIN HYDROCHLORIDE [Concomitant]
     Route: 048
     Dates: start: 20110124, end: 20110208
  10. SOLOSTAR [Suspect]
     Dates: start: 20091201, end: 20100530
  11. ALLELOCK [Concomitant]
     Route: 048
     Dates: start: 20101018, end: 20101128

REACTIONS (1)
  - THYROID CANCER [None]
